FAERS Safety Report 18123647 (Version 1)
Quarter: 2020Q3

REPORT INFORMATION
  Report Type: Spontaneous
  Country: CN (occurrence: CN)
  Receive Date: 20200807
  Receipt Date: 20200807
  Transmission Date: 20201103
  Serious: Yes (Other)
  Sender: FDA-Public Use
  Company Number: CN-BRISTOL-MYERS SQUIBB COMPANY-BMS-2020-060072

PATIENT
  Age: 38 Year
  Sex: Male
  Weight: 58 kg

DRUGS (1)
  1. BARACLUDE [Suspect]
     Active Substance: ENTECAVIR
     Indication: HEPATITIS B
     Dosage: 0.5 MILLIGRAM, QHS
     Route: 048
     Dates: start: 201612

REACTIONS (5)
  - Haematochezia [Unknown]
  - Suspected counterfeit product [Unknown]
  - Liver disorder [Not Recovered/Not Resolved]
  - Hepatitis B DNA increased [Not Recovered/Not Resolved]
  - Dry eye [Not Recovered/Not Resolved]

NARRATIVE: CASE EVENT DATE: 202003
